FAERS Safety Report 7751314-9 (Version None)
Quarter: 2011Q3

REPORT INFORMATION
  Report Type: 
  Country: None (occurrence: None)
  Receive Date: 20110914
  Receipt Date: 20110901
  Transmission Date: 20111222
  Serious: Yes (Life-Threatening, Hospitalization)
  Sender: FDA-Public Use
  Company Number: FR-MYLANLABS-2011S1018163

PATIENT
  Age: 63 Year
  Sex: Male

DRUGS (3)
  1. DOCETAXEL [Suspect]
     Indication: CHEMOTHERAPY
     Dates: start: 20110316
  2. EFUDEX [Suspect]
     Indication: CHEMOTHERAPY
     Dates: start: 20110316, end: 20110320
  3. CISPLATIN [Suspect]
     Indication: CHEMOTHERAPY
     Route: 042
     Dates: start: 20110316, end: 20110319

REACTIONS (2)
  - RENAL FAILURE ACUTE [None]
  - HYPERKALAEMIA [None]
